FAERS Safety Report 8020391-2 (Version None)
Quarter: 2012Q1

REPORT INFORMATION
  Report Type: 
  Country: None (occurrence: None)
  Receive Date: 20120103
  Receipt Date: 20111222
  Transmission Date: 20120608
  Serious: Yes (Other)
  Sender: FDA-Public Use
  Company Number: US-ELI_LILLY_AND_COMPANY-US201112000678

PATIENT
  Sex: Female

DRUGS (1)
  1. FORTEO [Suspect]
     Indication: OSTEOPOROSIS
     Dosage: 20 UG, QD
     Route: 058
     Dates: start: 20111027

REACTIONS (4)
  - INJECTION SITE HAEMATOMA [None]
  - OESOPHAGEAL PERFORATION [None]
  - HIATUS HERNIA [None]
  - INJECTION SITE HAEMORRHAGE [None]
